FAERS Safety Report 13654583 (Version 1)
Quarter: 2017Q2

REPORT INFORMATION
  Report Type: Spontaneous
  Country: KZ (occurrence: KZ)
  Receive Date: 20170615
  Receipt Date: 20170615
  Transmission Date: 20170830
  Serious: Yes (Other)
  Sender: FDA-Public Use
  Company Number: KZ-MERCK KGAA-2022057

PATIENT
  Age: 64 Year
  Sex: Female

DRUGS (2)
  1. OMEGA 3 CARDIO [Concomitant]
  2. NOVOTHYROX [Suspect]
     Active Substance: LEVOTHYROXINE SODIUM
     Indication: HYPOTHYROIDISM
     Route: 048

REACTIONS (3)
  - Arrhythmia [Unknown]
  - Weight decreased [Unknown]
  - Palpitations [Unknown]
